FAERS Safety Report 12520979 (Version 1)
Quarter: 2016Q3

REPORT INFORMATION
  Report Type: Report from Study
  Country: GB (occurrence: GB)
  Receive Date: 20160701
  Receipt Date: 20160701
  Transmission Date: 20161109
  Serious: Yes (Other)
  Sender: FDA-Public Use
  Company Number: GB-ACTELION-A-CH2014-94238

PATIENT
  Age: 19 Year
  Sex: Female
  Weight: 40 kg

DRUGS (5)
  1. IMIPRAMINE [Concomitant]
     Active Substance: IMIPRAMINE
     Indication: DEPRESSION
  2. CLOBAZAM [Concomitant]
     Active Substance: CLOBAZAM
     Indication: EPILEPSY
  3. EPILIM [Concomitant]
     Active Substance: VALPROATE SODIUM
     Indication: EPILEPSY
  4. LAMOTRIGINE. [Concomitant]
     Active Substance: LAMOTRIGINE
     Indication: EPILEPSY
  5. ZAVESCA [Suspect]
     Active Substance: MIGLUSTAT
     Indication: NIEMANN-PICK DISEASE
     Dosage: 200 MG, TID
     Route: 048
     Dates: start: 200806

REACTIONS (6)
  - Cataplexy [Unknown]
  - Concomitant disease aggravated [Unknown]
  - Seizure [Not Recovered/Not Resolved]
  - Dystonia [Not Recovered/Not Resolved]
  - Chorea [Not Recovered/Not Resolved]
  - Tremor [Unknown]
